FAERS Safety Report 24086865 (Version 1)
Quarter: 2024Q3

REPORT INFORMATION
  Report Type: Spontaneous
  Country: JP (occurrence: JP)
  Receive Date: 20240713
  Receipt Date: 20240713
  Transmission Date: 20241017
  Serious: Yes (Other)
  Sender: SANOFI AVENTIS
  Company Number: JP-SA-2024SA199570

PATIENT
  Age: 53 Year
  Sex: Female

DRUGS (2)
  1. CLOPIDOGREL BISULFATE [Suspect]
     Active Substance: CLOPIDOGREL BISULFATE
     Dosage: UNK
     Dates: start: 201806, end: 201909
  2. ASPIRIN [Suspect]
     Active Substance: ASPIRIN
     Dosage: UNK

REACTIONS (5)
  - Motor dysfunction [Unknown]
  - Mastication disorder [Unknown]
  - Language disorder [Unknown]
  - Motor dysfunction [Unknown]
  - Cerebral haemorrhage [Unknown]
